FAERS Safety Report 8511424 (Version 2)
Quarter: 2013Q3

REPORT INFORMATION
  Report Type: Spontaneous
  Country: US (occurrence: US)
  Receive Date: 20120413
  Receipt Date: 20130830
  Transmission Date: 20140515
  Serious: Yes (Hospitalization)
  Sender: FDA-Public Use
  Company Number: US-ASTRAZENECA-2011SE64694

PATIENT
  Age: 82 Year
  Sex: Female
  Weight: 76.2 kg

DRUGS (16)
  1. NEXIUM [Suspect]
     Indication: GASTROOESOPHAGEAL REFLUX DISEASE
     Route: 048
     Dates: start: 2008
  2. NEXIUM [Suspect]
     Indication: ULCER
     Route: 048
     Dates: start: 2008
  3. LEVOTHROID [Concomitant]
     Indication: THYROID DISORDER
     Route: 048
     Dates: start: 201302
  4. IRON PLUS VITAMIN CY [Concomitant]
     Indication: FATIGUE
     Dosage: DAILY
     Route: 048
     Dates: start: 201306
  5. CITRICAL PLUS VITAMIN D [Concomitant]
     Indication: VITAMIN SUPPLEMENTATION
     Dosage: DAILY
     Route: 048
     Dates: start: 2013
  6. CALCIUM [Concomitant]
     Indication: VITAMIN SUPPLEMENTATION
     Dosage: DAILY
     Route: 048
  7. MAGNESIUM [Concomitant]
     Indication: MINERAL SUPPLEMENTATION
     Dosage: DAILY
     Route: 048
  8. ZINC [Concomitant]
     Indication: MINERAL SUPPLEMENTATION
     Dosage: DAILY
     Route: 048
  9. GLIPIZIDE [Concomitant]
     Indication: DIABETES MELLITUS
     Route: 048
     Dates: start: 2010
  10. METFORMIN [Concomitant]
     Indication: DIABETES MELLITUS
     Route: 048
     Dates: start: 1980
  11. TRIAMTERENE/HCTZ [Concomitant]
     Indication: FLUID RETENTION
     Route: 048
     Dates: start: 2008
  12. BENAZEPRIL [Concomitant]
     Indication: HYPERTENSION
     Route: 048
     Dates: start: 2008
  13. DILTIAZAM ER [Concomitant]
     Indication: HYPERTENSION
     Route: 048
     Dates: start: 2008
  14. FLOVENT [Concomitant]
     Indication: ASTHMA
     Route: 055
     Dates: start: 1960
  15. SIMVASTATIN [Concomitant]
     Indication: BLOOD CHOLESTEROL
     Route: 048
     Dates: start: 2010
  16. VALIUM [Concomitant]
     Indication: ANXIETY
     Route: 048
     Dates: start: 2003

REACTIONS (11)
  - Anaemia [Recovering/Resolving]
  - Urinary tract infection [Unknown]
  - Pyrexia [Unknown]
  - Haemorrhoids [Not Recovered/Not Resolved]
  - Fatigue [Unknown]
  - Haematochezia [Unknown]
  - Fatigue [Unknown]
  - Thyroid disorder [Unknown]
  - Gastric ulcer [Unknown]
  - Constipation [Unknown]
  - Intentional drug misuse [Unknown]
